FAERS Safety Report 8263906-1 (Version None)
Quarter: 2012Q2

REPORT INFORMATION
  Report Type: 
  Country: None (occurrence: None)
  Receive Date: 20120406
  Receipt Date: 20120327
  Transmission Date: 20120825
  Serious: Yes (Hospitalization)
  Sender: FDA-Public Use
  Company Number: ES-BRISTOL-MYERS SQUIBB COMPANY-16370967

PATIENT
  Age: 70 Year
  Sex: Male

DRUGS (2)
  1. IMATINIB MESYLATE [Suspect]
  2. DASATINIB [Suspect]
     Indication: CHRONIC MYELOID LEUKAEMIA
     Dosage: RECEIVED DASATINIB FOR 3-4 WEEKS

REACTIONS (3)
  - PLEURAL EFFUSION [None]
  - FLUID RETENTION [None]
  - CARDIOVASCULAR DISORDER [None]
